FAERS Safety Report 9750230 (Version 1)
Quarter: 2013Q4

REPORT INFORMATION
  Report Type: Report from Study
  Country: GB (occurrence: GB)
  Receive Date: 20131212
  Receipt Date: 20131212
  Transmission Date: 20140711
  Serious: Yes (Hospitalization)
  Sender: FDA-Public Use
  Company Number: GB-GLAXOSMITHKLINE-B0952179A

PATIENT
  Age: 65 Year
  Sex: Male

DRUGS (6)
  1. PAZOPANIB [Suspect]
     Indication: RENAL CELL CARCINOMA
     Dosage: 600MG PER DAY
     Route: 048
     Dates: start: 20130405, end: 20130924
  2. CITALOPRAM [Concomitant]
     Indication: DEPRESSION
     Dosage: 20MG PER DAY
     Route: 048
     Dates: start: 20131030, end: 20131124
  3. OMEPRAZOLE [Concomitant]
     Dosage: 20MG PER DAY
     Route: 048
     Dates: start: 20130222, end: 20131124
  4. TINZAPARIN [Concomitant]
     Dosage: 14000UNIT PER DAY
     Route: 058
     Dates: start: 20130917, end: 20131124
  5. DEXAMETHASONE [Concomitant]
     Dosage: 2MG PER DAY
     Route: 048
     Dates: start: 20130917, end: 20131030
  6. PARACETAMOL [Concomitant]
     Indication: ANALGESIC THERAPY
     Dosage: 1G FOUR TIMES PER DAY
     Dates: start: 20130927, end: 20131124

REACTIONS (1)
  - Pleural effusion [Recovered/Resolved]
